FAERS Safety Report 17179091 (Version 1)
Quarter: 2019Q4

REPORT INFORMATION
  Report Type: Report from Study
  Country: CA (occurrence: CA)
  Receive Date: 20191219
  Receipt Date: 20191219
  Transmission Date: 20200122
  Serious: Yes (Other)
  Sender: FDA-Public Use
  Company Number: PHHY2018CA034808

PATIENT
  Age: 55 Year
  Sex: Female

DRUGS (1)
  1. GILENYA [Suspect]
     Active Substance: FINGOLIMOD HYDROCHLORIDE
     Indication: PRODUCT USED FOR UNKNOWN INDICATION
     Dosage: UNK
     Route: 048
     Dates: start: 20180626

REACTIONS (10)
  - Dizziness [Recovered/Resolved]
  - Bradycardia [Unknown]
  - Fatigue [Unknown]
  - Expanded disability status scale [Unknown]
  - Electrocardiogram abnormal [Unknown]
  - Abdominal distension [Unknown]
  - Skin cancer [Unknown]
  - Arthralgia [Unknown]
  - Asthenia [Unknown]
  - Weight increased [Unknown]

NARRATIVE: CASE EVENT DATE: 2018
